FAERS Safety Report 18029925 (Version 3)
Quarter: 2020Q3

REPORT INFORMATION
  Report Type: Spontaneous
  Country: US (occurrence: US)
  Receive Date: 20200715
  Receipt Date: 20200921
  Transmission Date: 20201103
  Serious: No
  Sender: FDA-Public Use
  Company Number: US-PFIZER INC-2020270611

PATIENT
  Age: 65 Year
  Sex: Female

DRUGS (8)
  1. CALCIUM 500+D [Concomitant]
     Active Substance: CALCIUM\VITAMIN D
     Dosage: UNK
  2. IBRANCE [Suspect]
     Active Substance: PALBOCICLIB
     Indication: BREAST CANCER FEMALE
     Dosage: 125 MG, CYCLIC (1 DAILY 3 WEEKS ON THEN 1 WEEK OFF)
     Route: 048
     Dates: start: 20200612, end: 2020
  3. ASPIRINE EC [Concomitant]
     Dosage: 81 MG
  4. CALCIUM [Concomitant]
     Active Substance: CALCIUM
     Dosage: UNK [CALCIUM 500(1250) TABLET]
  5. METFORMIN HCL [Concomitant]
     Active Substance: METFORMIN HYDROCHLORIDE
     Dosage: 500 MG
  6. ZOMETA [Concomitant]
     Active Substance: ZOLEDRONIC ACID
     Dosage: UNK (4 MG/100 ML PGGYBK BTL)
  7. ANASTROZOLE. [Concomitant]
     Active Substance: ANASTROZOLE
     Dosage: 1 MG
  8. IBRANCE [Suspect]
     Active Substance: PALBOCICLIB
     Dosage: 125 MG, CYCLIC (DAILY FOR 21 DAYS, THEN 7 DAYS OFF)
     Route: 048
     Dates: start: 20200713

REACTIONS (8)
  - Skin exfoliation [Not Recovered/Not Resolved]
  - Back pain [Not Recovered/Not Resolved]
  - Hypersensitivity [Unknown]
  - Dry skin [Not Recovered/Not Resolved]
  - Cough [Unknown]
  - Productive cough [Unknown]
  - Arthralgia [Not Recovered/Not Resolved]
  - Injection site rash [Unknown]

NARRATIVE: CASE EVENT DATE: 2020
